FAERS Safety Report 11734445 (Version 1)
Quarter: 2015Q4

REPORT INFORMATION
  Report Type: Spontaneous
  Country: US (occurrence: None)
  Receive Date: 20151112
  Receipt Date: 20151112
  Transmission Date: 20160304
  Serious: No
  Sender: FDA-Public Use
  Company Number: None

PATIENT
  Age: 19 Year
  Sex: Female
  Weight: 61.69 kg

DRUGS (4)
  1. TYLENOL [Concomitant]
     Active Substance: ACETAMINOPHEN
  2. LEVAQUIN [Concomitant]
     Active Substance: LEVOFLOXACIN
  3. ISOVUE 300 [Concomitant]
     Active Substance: IOPAMIDOL
  4. VANCOMYCIN 1000 MG [Suspect]
     Active Substance: VANCOMYCIN
     Route: 042
     Dates: start: 20151015, end: 20151015

REACTIONS (1)
  - Pruritus [None]

NARRATIVE: CASE EVENT DATE: 20151016
